FAERS Safety Report 17925335 (Version 3)
Quarter: 2022Q1

REPORT INFORMATION
  Report Type: Spontaneous
  Country: CN (occurrence: CN)
  Receive Date: 20200622
  Receipt Date: 20220209
  Transmission Date: 20220423
  Serious: Yes (Hospitalization)
  Sender: FDA-Public Use
  Company Number: CN-CELGENE-CHN-20200604414

PATIENT
  Age: 74 Year
  Sex: Male
  Weight: 66 kg

DRUGS (17)
  1. ABRAXANE [Suspect]
     Active Substance: PACLITAXEL
     Indication: Squamous cell carcinoma of lung
     Dosage: 25 MILLIGRAM
     Route: 041
     Dates: start: 20200507, end: 20200521
  2. ABRAXANE [Suspect]
     Active Substance: PACLITAXEL
     Dosage: 25 MILLIGRAM
     Route: 041
     Dates: start: 20200529, end: 20200529
  3. ABRAXANE [Suspect]
     Active Substance: PACLITAXEL
     Dosage: 130 MILLIGRAM; 75% OF ORIGINAL DOSE
     Route: 041
     Dates: start: 20200612
  4. CARBOPLATIN [Suspect]
     Active Substance: CARBOPLATIN
     Indication: Squamous cell carcinoma of lung
     Dosage: 23.3333 MILLIGRAM
     Route: 041
     Dates: start: 20200507, end: 20200508
  5. CARBOPLATIN [Suspect]
     Active Substance: CARBOPLATIN
     Dosage: 26.1905 MILLIGRAM
     Route: 041
     Dates: start: 20200529, end: 20200529
  6. SERPLULIMAB [Suspect]
     Active Substance: SERPLULIMAB
     Indication: Squamous cell carcinoma of lung
     Route: 041
     Dates: start: 20200507, end: 20200508
  7. SERPLULIMAB [Suspect]
     Active Substance: SERPLULIMAB
     Dosage: 13.8095 MILLIGRAM
     Route: 041
     Dates: start: 20200529
  8. GLUCOPHAGE [Concomitant]
     Active Substance: METFORMIN HYDROCHLORIDE
     Indication: Diabetes mellitus
     Dosage: 36000 MILLIGRAM
     Route: 048
     Dates: start: 2019
  9. Xiao ke wan [Concomitant]
     Indication: Diabetes mellitus
     Dosage: 12 DOSAGE FORMS
     Route: 048
     Dates: start: 2019
  10. ADALAT [Concomitant]
     Active Substance: NIFEDIPINE
     Indication: Hypertension
     Dosage: 30 MILLIGRAM
     Route: 048
     Dates: start: 202002
  11. ATORVASTATIN CALCIUM [Concomitant]
     Active Substance: ATORVASTATIN CALCIUM
     Indication: Arteriosclerosis
     Dosage: 20 MILLIGRAM
     Route: 048
     Dates: start: 202002
  12. Yunnan baiyao [Concomitant]
     Indication: Haemoptysis
     Dosage: .25 GRAM
     Route: 048
     Dates: start: 20200523, end: 20200524
  13. VITAMIN C [Concomitant]
     Active Substance: ASCORBIC ACID
     Indication: Prophylaxis
     Route: 041
     Dates: start: 20200529, end: 20200529
  14. GLYCYRRHIZIN [Concomitant]
     Active Substance: GLYCYRRHIZIN
     Indication: Prophylaxis
     Route: 041
     Dates: start: 20200529, end: 20200529
  15. SODIUM GLUCURONATE [Concomitant]
     Active Substance: SODIUM GLUCURONATE
     Indication: Prophylaxis
     Route: 041
     Dates: start: 20200529, end: 20200529
  16. GRANISETRON HYDROCHLORIDE [Concomitant]
     Active Substance: GRANISETRON HYDROCHLORIDE
     Indication: Antiemetic supportive care
     Route: 041
     Dates: start: 20200529, end: 20200529
  17. DUPHALAC [Concomitant]
     Active Substance: LACTULOSE
     Indication: Constipation
     Dosage: 45 MILLILITER
     Route: 048
     Dates: start: 20200605, end: 20200608

REACTIONS (1)
  - Neutrophil count decreased [Recovered/Resolved]

NARRATIVE: CASE EVENT DATE: 20200605
